FAERS Safety Report 25713807 (Version 1)
Quarter: 2025Q3

REPORT INFORMATION
  Report Type: Spontaneous
  Country: US (occurrence: US)
  Receive Date: 20250822
  Receipt Date: 20250822
  Transmission Date: 20251021
  Serious: Yes (Other)
  Sender: GLAXOSMITHKLINE
  Company Number: US-GLAXOSMITHKLINE INC-US2025102077

PATIENT
  Sex: Female

DRUGS (2)
  1. BENLYSTA [Suspect]
     Active Substance: BELIMUMAB
     Indication: Lupus nephritis
  2. LUPKYNIS [Concomitant]
     Active Substance: VOCLOSPORIN
     Indication: Product used for unknown indication

REACTIONS (2)
  - Lupus nephritis [Unknown]
  - Condition aggravated [Unknown]
